FAERS Safety Report 4833293-7 (Version None)
Quarter: 2005Q4

REPORT INFORMATION
  Report Type: 
  Country: None (occurrence: None)
  Receive Date: 20051117
  Receipt Date: 20051108
  Transmission Date: 20060501
  Serious: Yes (Disabling)
  Sender: FDA-Public Use
  Company Number: USA-2005-0021784

PATIENT
  Age: 28 Year
  Sex: Female

DRUGS (2)
  1. CEFDITOREN PIVOXIL [Suspect]
     Indication: TOOTH EXTRACTION
     Dosage: 300 MG, ORAL
     Route: 048
     Dates: start: 20050905
  2. LONOXIN (LOXOPROFEN SODIUM) [Concomitant]

REACTIONS (11)
  - ABDOMINAL PAIN UPPER [None]
  - ALANINE AMINOTRANSFERASE INCREASED [None]
  - ASPARTATE AMINOTRANSFERASE INCREASED [None]
  - BLOOD ALKALINE PHOSPHATASE INCREASED [None]
  - BLOOD LACTATE DEHYDROGENASE INCREASED [None]
  - GAMMA-GLUTAMYLTRANSFERASE INCREASED [None]
  - JAUNDICE [None]
  - LIVER DISORDER [None]
  - LYMPHOCYTE STIMULATION TEST POSITIVE [None]
  - NAUSEA [None]
  - THERAPY NON-RESPONDER [None]
